FAERS Safety Report 17592351 (Version 1)
Quarter: 2020Q1

REPORT INFORMATION
  Report Type: Spontaneous
  Country: US (occurrence: US)
  Receive Date: 20200327
  Receipt Date: 20200327
  Transmission Date: 20200409
  Serious: Yes (Other)
  Sender: FDA-Public Use
  Company Number: US-PFIZER INC-2020124548

PATIENT
  Age: 67 Year
  Sex: Female
  Weight: 90.25 kg

DRUGS (3)
  1. LYRICA [Suspect]
     Active Substance: PREGABALIN
     Indication: NEURALGIA
     Dosage: 75 MG, 3X/DAY
     Dates: end: 202003
  2. LYRICA [Suspect]
     Active Substance: PREGABALIN
     Dosage: 75 MG, 2X/DAY
     Dates: start: 202003
  3. OXYCODONE [Concomitant]
     Active Substance: OXYCODONE
     Indication: PAIN
     Dosage: 5 MG (CAN TAKE THREE A DAY AS NEEDED, BUT ONLY TAKES ONE AT NIGHT)

REACTIONS (3)
  - Gait disturbance [Unknown]
  - Intentional product misuse [Unknown]
  - Hypertension [Unknown]

NARRATIVE: CASE EVENT DATE: 202003
